FAERS Safety Report 9234902 (Version 2)
Quarter: 2013Q2

REPORT INFORMATION
  Report Type: Spontaneous
  Country: US (occurrence: US)
  Receive Date: 20130416
  Receipt Date: 20130529
  Transmission Date: 20140414
  Serious: Yes (Other)
  Sender: FDA-Public Use
  Company Number: US-ALLERGAN-1303995US

PATIENT
  Age: 62 Year
  Sex: Male

DRUGS (1)
  1. LUMIGAN? 0.01% [Suspect]
     Indication: OPEN ANGLE GLAUCOMA
     Dosage: 1 GTT, QHS
     Route: 047
     Dates: start: 20121221, end: 20130307

REACTIONS (2)
  - Infarction [Unknown]
  - Diplopia [Recovering/Resolving]
